FAERS Safety Report 6718560-4 (Version None)
Quarter: 2010Q2

REPORT INFORMATION
  Report Type: 
  Country: None (occurrence: None)
  Receive Date: 20100503
  Receipt Date: 20100419
  Transmission Date: 20101027
  Serious: Yes (Death, Hospitalization)
  Sender: FDA-Public Use
  Company Number: 2009AC000250

PATIENT
  Age: 71 Year
  Sex: Female
  Weight: 35.8342 kg

DRUGS (53)
  1. DIGOXIN [Suspect]
     Dosage: 0.125 MG;QD;PO
     Route: 048
     Dates: start: 20070601, end: 20071128
  2. PROTONIX [Concomitant]
  3. COREG [Concomitant]
  4. PROCARDIA [Concomitant]
  5. ALBUTEROL SULFATE AUTOHALER [Concomitant]
  6. OXYGEN [Concomitant]
  7. TORADOL [Concomitant]
  8. ALTACE [Concomitant]
  9. CORDARONE [Concomitant]
  10. XOPENEX [Concomitant]
  11. LASIX [Concomitant]
  12. AMIODARONE [Concomitant]
  13. POTASSIUM CHLORIDE [Concomitant]
  14. NEURONTIN [Concomitant]
  15. PROTONIX [Concomitant]
  16. LOVENOX [Concomitant]
  17. ASPIRIN [Concomitant]
  18. PROCARDIA XL [Concomitant]
  19. POTASSIUM [Concomitant]
  20. TPN ELECTROLYTES IN PLASTIC CONTAINER [Concomitant]
  21. MORPHINE SULFATE [Concomitant]
  22. ATROPINE [Concomitant]
  23. LORAZEPAM [Concomitant]
  24. COMPAZINE [Concomitant]
  25. PHEONOBARBITAL [Concomitant]
  26. ACETAMINOPHEN [Concomitant]
  27. LIBRIUM [Concomitant]
  28. HALOPERIDOL [Concomitant]
  29. L-HYOSCAMINE SULFATE [Concomitant]
  30. MEGACE [Concomitant]
  31. LEVAQUIN [Concomitant]
  32. AMBIEN [Concomitant]
  33. LORTAB [Concomitant]
  34. SENNA [Concomitant]
  35. ALBUTEROL [Concomitant]
  36. VICODIN [Concomitant]
  37. LOTREL [Concomitant]
  38. ALLEGRA [Concomitant]
  39. PAXIL [Concomitant]
  40. PREVACID [Concomitant]
  41. NITROGLYCERIN [Concomitant]
  42. FOSAMAX [Concomitant]
  43. K-DUR [Concomitant]
  44. MULTI-VITAMINS [Concomitant]
  45. TRAMADOL HCL [Concomitant]
  46. ULTRAM [Concomitant]
  47. AMITRIPTLINE HYDROCHLORIDE TAB [Concomitant]
  48. BENAZEPRIL HYDROCHLORIDE [Concomitant]
  49. ZOLOFT [Concomitant]
  50. SEREVENT [Concomitant]
  51. FLOVENT [Concomitant]
  52. SIMVASTATIN [Concomitant]
  53. FEXOFENADINE [Concomitant]

REACTIONS (45)
  - ABDOMINAL MASS [None]
  - ABSCESS [None]
  - ANAEMIA [None]
  - BACK PAIN [None]
  - BALANCE DISORDER [None]
  - BLINDNESS UNILATERAL [None]
  - CACHEXIA [None]
  - CARDIAC ARREST [None]
  - CARDIAC FAILURE CONGESTIVE [None]
  - CEREBROVASCULAR ACCIDENT [None]
  - CHRONIC OBSTRUCTIVE PULMONARY DISEASE [None]
  - COLITIS ISCHAEMIC [None]
  - CONDITION AGGRAVATED [None]
  - CONFUSIONAL STATE [None]
  - CONTUSION [None]
  - CONVULSION [None]
  - CORONARY ARTERY DISEASE [None]
  - CULTURE URINE POSITIVE [None]
  - DECREASED APPETITE [None]
  - DEHYDRATION [None]
  - ECONOMIC PROBLEM [None]
  - EMPHYSEMA [None]
  - FAILURE TO THRIVE [None]
  - FALL [None]
  - HYPERTENSION [None]
  - INTERNATIONAL NORMALISED RATIO DECREASED [None]
  - KLEBSIELLA INFECTION [None]
  - LIVER FUNCTION TEST ABNORMAL [None]
  - MACULAR DEGENERATION [None]
  - MALNUTRITION [None]
  - MULTIPLE INJURIES [None]
  - MUSCULAR WEAKNESS [None]
  - MUSCULOSKELETAL PAIN [None]
  - NECK PAIN [None]
  - PAIN [None]
  - PERIPHERAL ARTERIAL OCCLUSIVE DISEASE [None]
  - PNEUMONIA [None]
  - PROTHROMBIN TIME PROLONGED [None]
  - RENAL FAILURE [None]
  - RETINAL ARTERY OCCLUSION [None]
  - SIGMOIDITIS [None]
  - SOCIAL AVOIDANT BEHAVIOUR [None]
  - THERAPEUTIC AGENT TOXICITY [None]
  - URINARY TRACT INFECTION [None]
  - WEIGHT DECREASED [None]
